FAERS Safety Report 8006243-2 (Version None)
Quarter: 2011Q4

REPORT INFORMATION
  Report Type: 
  Country: None (occurrence: None)
  Receive Date: 20111226
  Receipt Date: 20111212
  Transmission Date: 20120403
  Serious: Yes (Other)
  Sender: FDA-Public Use
  Company Number: JP-ELI_LILLY_AND_COMPANY-JP201112003970

PATIENT
  Age: 75 Year
  Sex: Female

DRUGS (7)
  1. FORTEO [Suspect]
     Dosage: UNK
     Route: 058
     Dates: start: 20111116, end: 20111201
  2. ISOSORBIDE MONONITRATE [Concomitant]
  3. SELTEPNON [Concomitant]
  4. BUFFERIN [Concomitant]
  5. CONIEL [Concomitant]
  6. SIGMART [Concomitant]
  7. LIPITOR [Concomitant]

REACTIONS (1)
  - MYOCARDIAL INFARCTION [None]
